FAERS Safety Report 7490791-8 (Version None)
Quarter: 2011Q2

REPORT INFORMATION
  Report Type: 
  Country: None (occurrence: None)
  Receive Date: 20110519
  Receipt Date: 20101116
  Transmission Date: 20111010
  Serious: Yes (Life-Threatening, Hospitalization)
  Sender: FDA-Public Use
  Company Number: JP-AMGEN-QUU432568

PATIENT
  Age: 55 Year
  Sex: Female
  Weight: 70 kg

DRUGS (7)
  1. HYALEIN [Concomitant]
     Indication: KERATOCONJUNCTIVITIS SICCA
     Route: 031
  2. ENBREL [Suspect]
     Indication: RHEUMATOID ARTHRITIS
     Dosage: 25 MG, 2 TIMES/WK
     Route: 058
     Dates: start: 20100803, end: 20100805
  3. PREDNISOLONE [Concomitant]
     Indication: RHEUMATOID ARTHRITIS
     Dosage: 5 MG, QD
     Route: 048
     Dates: start: 19940401
  4. RHEUMATREX [Suspect]
     Dosage: UNK
     Route: 048
     Dates: start: 20100601, end: 20100729
  5. LOXOPROFEN [Concomitant]
     Indication: RHEUMATOID ARTHRITIS
     Dosage: 60 MG, TID
     Route: 048
  6. PREDNISOLONE [Concomitant]
     Dosage: 4 MG, UNK
     Dates: start: 19940401
  7. RABEPRAZOLE SODIUM [Concomitant]
     Indication: REFLUX OESOPHAGITIS
     Dosage: 10 MG, QD
     Route: 048
     Dates: start: 20060214

REACTIONS (1)
  - LUNG DISORDER [None]
